FAERS Safety Report 5330000-9 (Version None)
Quarter: 2007Q2

REPORT INFORMATION
  Report Type: 
  Country: None (occurrence: None)
  Receive Date: 20070521
  Receipt Date: 20070514
  Transmission Date: 20071010
  Serious: Yes (Hospitalization)
  Sender: FDA-Public Use
  Company Number: B0463341A

PATIENT
  Age: 8 Year
  Sex: Female
  Weight: 19.3 kg

DRUGS (2)
  1. LAMICTAL [Suspect]
     Indication: DRUG USE FOR UNKNOWN INDICATION
     Route: 048
     Dates: start: 20060701
  2. VALPROATE SODIUM [Concomitant]
     Dosage: 300MG TWICE PER DAY
     Route: 048

REACTIONS (3)
  - DRUG LEVEL THERAPEUTIC [None]
  - MOOD ALTERED [None]
  - PERSONALITY CHANGE [None]
